FAERS Safety Report 6694481-0 (Version None)
Quarter: 2010Q2

REPORT INFORMATION
  Report Type: 
  Country: None (occurrence: None)
  Receive Date: 20100420
  Receipt Date: 20100405
  Transmission Date: 20101027
  Serious: Yes (Disabling)
  Sender: FDA-Public Use
  Company Number: AUR-APL-2010-00989

PATIENT
  Age: 30 Year
  Sex: Female

DRUGS (3)
  1. CIPROFLOXACIN [Suspect]
     Indication: URINARY TRACT INFECTION
     Dosage: 500MG, BID, ORAL
     Route: 048
     Dates: start: 20100218, end: 20100309
  2. AMITRIPTYLINE [Concomitant]
  3. GENTAMICIN [Concomitant]

REACTIONS (2)
  - OEDEMA PERIPHERAL [None]
  - TENDON DISORDER [None]
